FAERS Safety Report 10975622 (Version 2)
Quarter: 2015Q2

REPORT INFORMATION
  Report Type: Spontaneous
  Country: US (occurrence: US)
  Receive Date: 20150401
  Receipt Date: 20150604
  Transmission Date: 20150821
  Serious: No
  Sender: FDA-Public Use
  Company Number: US-GLAXOSMITHKLINE-US2015042854

PATIENT
  Age: 78 Year
  Sex: Female

DRUGS (17)
  1. OMEPRAZOLE. [Concomitant]
     Active Substance: OMEPRAZOLE
  2. ADVAIR HFA [Suspect]
     Active Substance: FLUTICASONE PROPIONATE\SALMETEROL XINAFOATE
     Indication: PULMONARY VASCULITIS
     Dosage: 2 PUFF(S), BID
     Route: 055
  3. ALBUTEROL. [Concomitant]
     Active Substance: ALBUTEROL
  4. FUROSEMIDE. [Concomitant]
     Active Substance: FUROSEMIDE
  5. LOSARTAN POTASSIUM. [Concomitant]
     Active Substance: LOSARTAN POTASSIUM
  6. PRAVASTATIN [Concomitant]
     Active Substance: PRAVASTATIN\PRAVASTATIN SODIUM
  7. PREDNISONE. [Concomitant]
     Active Substance: PREDNISONE
  8. LEVOTHYROXINE [Concomitant]
     Active Substance: LEVOTHYROXINE
  9. GABAPENTIN. [Concomitant]
     Active Substance: GABAPENTIN
  10. KLOR-CON [Concomitant]
     Active Substance: POTASSIUM CHLORIDE
  11. LANTUS [Concomitant]
     Active Substance: INSULIN GLARGINE
  12. AZATHIOPRINE. [Concomitant]
     Active Substance: AZATHIOPRINE
  13. DOXAZOSIN [Concomitant]
     Active Substance: DOXAZOSIN\DOXAZOSIN MESYLATE
  14. HUMALOG [Concomitant]
     Active Substance: INSULIN LISPRO
  15. RESTASIS [Concomitant]
     Active Substance: CYCLOSPORINE
  16. SERTRALINE [Concomitant]
     Active Substance: SERTRALINE HYDROCHLORIDE
  17. TRAZODONE [Concomitant]
     Active Substance: TRAZODONE HYDROCHLORIDE

REACTIONS (2)
  - Product quality issue [Unknown]
  - Inhalation therapy [Unknown]

NARRATIVE: CASE EVENT DATE: 201501
